FAERS Safety Report 25747572 (Version 1)
Quarter: 2025Q3

REPORT INFORMATION
  Report Type: Spontaneous
  Country: US (occurrence: US)
  Receive Date: 20250901
  Receipt Date: 20250901
  Transmission Date: 20251021
  Serious: No
  Sender: SANOFI AVENTIS
  Company Number: US-SA-2025SA260549

PATIENT
  Age: 50 Year
  Sex: Female

DRUGS (2)
  1. REZUROCK [Suspect]
     Active Substance: BELUMOSUDIL
     Indication: Thrombotic microangiopathy
     Dosage: 200 MG, QD
     Route: 048
     Dates: start: 20250807
  2. CABLIVI [Concomitant]
     Active Substance: CAPLACIZUMAB-YHDP

REACTIONS (1)
  - Product use in unapproved indication [Unknown]

NARRATIVE: CASE EVENT DATE: 20250807
